FAERS Safety Report 4495914-0 (Version None)
Quarter: 2004Q4

REPORT INFORMATION
  Report Type: 
  Country: None (occurrence: None)
  Receive Date: 20041108
  Receipt Date: 20041028
  Transmission Date: 20050328
  Serious: Yes (Hospitalization, Disabling, Other)
  Sender: FDA-Public Use
  Company Number: 980923-008013618

PATIENT
  Sex: Female
  Weight: 2.9 kg

DRUGS (6)
  1. MICONAZOLE [Suspect]
     Indication: DRUG USE FOR UNKNOWN INDICATION
     Route: 067
     Dates: start: 19980113, end: 19980119
  2. ZIDOVUDINE [Suspect]
     Indication: DRUG USE FOR UNKNOWN INDICATION
     Route: 049
     Dates: start: 19971217, end: 19980113
  3. CALCIUM FOLINATE [Suspect]
     Indication: DRUG USE FOR UNKNOWN INDICATION
     Route: 049
     Dates: start: 19900415
  4. DIDANOSINE [Suspect]
     Indication: DRUG USE FOR UNKNOWN INDICATION
     Route: 049
     Dates: start: 19971217
  5. LAMIVUDINE [Suspect]
     Indication: DRUG USE FOR UNKNOWN INDICATION
     Route: 049
     Dates: start: 19971217, end: 19980113
  6. ECONAZOLE [Suspect]
     Indication: DRUG USE FOR UNKNOWN INDICATION

REACTIONS (2)
  - CONGENITAL ARTERIOVENOUS FISTULA [None]
  - DRUG EXPOSURE DURING PREGNANCY [None]
